FAERS Safety Report 23617413 (Version 1)
Quarter: 2024Q1

REPORT INFORMATION
  Report Type: Spontaneous
  Country: US (occurrence: None)
  Receive Date: 20240310
  Receipt Date: 20240310
  Transmission Date: 20240410
  Serious: Yes (Hospitalization, Other)
  Sender: FDA-Public Use
  Company Number: None

PATIENT
  Age: 33 Year
  Sex: Female
  Weight: 51.75 kg

DRUGS (1)
  1. HERBALS\MITRAGYNINE [Suspect]
     Active Substance: HERBALS\MITRAGYNINE
     Indication: Spinal fracture
     Dates: start: 20230701, end: 20231120

REACTIONS (8)
  - Drug dependence [None]
  - Psychomotor hyperactivity [None]
  - Drug dependence [None]
  - Insomnia [None]
  - Drug withdrawal syndrome [None]
  - Skin burning sensation [None]
  - Headache [None]
  - Tremor [None]

NARRATIVE: CASE EVENT DATE: 20231120
